FAERS Safety Report 12610377 (Version 2)
Quarter: 2016Q3

REPORT INFORMATION
  Report Type: Spontaneous
  Country: JP (occurrence: JP)
  Receive Date: 20160801
  Receipt Date: 20160926
  Transmission Date: 20161109
  Serious: Yes (Hospitalization, Other)
  Sender: FDA-Public Use
  Company Number: JP-GLAXOSMITHKLINE-JP2016JPN084104

PATIENT
  Age: 36 Year
  Sex: Female
  Weight: 48 kg

DRUGS (6)
  1. LAMICTAL [Suspect]
     Active Substance: LAMOTRIGINE
     Indication: EPILEPSY
     Dosage: 25 MG, QOD
     Route: 048
     Dates: start: 20120327, end: 20120408
  2. DEPAKENE [Suspect]
     Active Substance: VALPROIC ACID
     Indication: CONVULSION PROPHYLAXIS
     Dosage: 200 MG, QD
     Route: 048
     Dates: start: 20120418, end: 20120508
  3. LAMICTAL [Suspect]
     Active Substance: LAMOTRIGINE
     Dosage: 50 MG, 1D
     Route: 048
     Dates: start: 20120424, end: 20120507
  4. DEPAKENE [Suspect]
     Active Substance: VALPROIC ACID
     Indication: EPILEPSY
     Dosage: 200 MG, BID
     Route: 048
     Dates: start: 201201, end: 20120417
  5. DEPAKENE [Suspect]
     Active Substance: VALPROIC ACID
     Dosage: 200 MG, BID
     Route: 048
     Dates: start: 20120509, end: 20130415
  6. LAMICTAL [Suspect]
     Active Substance: LAMOTRIGINE
     Indication: CONVULSION PROPHYLAXIS
     Dosage: 25 MG, 1D
     Route: 048
     Dates: start: 20120410, end: 20120423

REACTIONS (21)
  - Vulvar erosion [Recovering/Resolving]
  - Strangury [Recovered/Resolved]
  - Pigmentation disorder [Unknown]
  - Scab [Recovering/Resolving]
  - Blister [Recovering/Resolving]
  - Stevens-Johnson syndrome [Recovering/Resolving]
  - Erythema multiforme [Recovering/Resolving]
  - Epidermal necrosis [Unknown]
  - Nasal mucosal erosion [Recovering/Resolving]
  - Mouth haemorrhage [Recovering/Resolving]
  - Oedema mucosal [Recovering/Resolving]
  - Pruritus [Recovering/Resolving]
  - Ageusia [Recovering/Resolving]
  - Lip erosion [Recovering/Resolving]
  - Pyrexia [Unknown]
  - Rash generalised [Recovering/Resolving]
  - Lymphadenopathy [Unknown]
  - Generalised erythema [Recovering/Resolving]
  - Skin exfoliation [Recovering/Resolving]
  - Oral mucosa erosion [Recovering/Resolving]
  - Hypophagia [Recovering/Resolving]

NARRATIVE: CASE EVENT DATE: 20120429
